FAERS Safety Report 5062004-8 (Version None)
Quarter: 2006Q3

REPORT INFORMATION
  Report Type: 
  Country: None (occurrence: None)
  Receive Date: 20060726
  Receipt Date: 20020131
  Transmission Date: 20061208
  Serious: Yes (Hospitalization, Other)
  Sender: FDA-Public Use
  Company Number: 200210478FR

PATIENT
  Age: 61 Year
  Sex: Female
  Weight: 82 kg

DRUGS (15)
  1. ARAVA [Suspect]
     Indication: RHEUMATOID ARTHRITIS
     Route: 048
     Dates: start: 20000101, end: 20000101
  2. ARAVA [Suspect]
     Route: 048
     Dates: start: 20000101, end: 20010101
  3. ARAVA [Suspect]
     Route: 048
     Dates: start: 20010101, end: 20020322
  4. CORTANCYL [Concomitant]
     Indication: RHEUMATOID ARTHRITIS
     Route: 048
  5. CORTANCYL [Concomitant]
     Route: 048
  6. SPIRONOLACTONE [Concomitant]
  7. FUROSEMIDE [Concomitant]
  8. MOXONIDINE [Concomitant]
     Indication: HYPERTENSION
  9. ATORVASTATIN CALCIUM [Concomitant]
     Indication: HYPERCHOLESTEROLAEMIA
     Dates: end: 20020301
  10. PREDNISOLONE [Concomitant]
     Indication: RHEUMATOID ARTHRITIS
     Route: 048
  11. ALLOPURINOL [Concomitant]
     Indication: HYPERURICAEMIA
     Route: 048
  12. HORMONES AND RELATED AGENTS [Concomitant]
     Indication: MENOPAUSE
  13. ACETAMINOPHEN [Concomitant]
     Indication: ANALGESIC EFFECT
  14. CODEINE [Concomitant]
     Indication: ANALGESIC EFFECT
  15. DEXTROPROPOXYPHENE [Concomitant]
     Indication: ANALGESIC EFFECT

REACTIONS (24)
  - ASTHENIA [None]
  - CARDIAC MURMUR [None]
  - CYANOSIS [None]
  - DIABETES MELLITUS INSULIN-DEPENDENT [None]
  - DYSAESTHESIA [None]
  - ERYTHEMA [None]
  - GENERAL PHYSICAL HEALTH DETERIORATION [None]
  - HYPERCHOLESTEROLAEMIA [None]
  - HYPERTRIGLYCERIDAEMIA [None]
  - HYPONATRAEMIA [None]
  - HYPOTHYROIDISM [None]
  - INSOMNIA [None]
  - NIGHT SWEATS [None]
  - OEDEMA [None]
  - PAIN [None]
  - PANNICULITIS [None]
  - PERIPHERAL COLDNESS [None]
  - PROTEIN TOTAL DECREASED [None]
  - RED BLOOD CELL SEDIMENTATION RATE INCREASED [None]
  - SKIN INFLAMMATION [None]
  - TACHYCARDIA [None]
  - THROMBOCYTOPENIA [None]
  - TRANSAMINASES INCREASED [None]
  - VENOUS INSUFFICIENCY [None]
